FAERS Safety Report 7526017-6 (Version None)
Quarter: 2011Q2

REPORT INFORMATION
  Report Type: 
  Country: None (occurrence: None)
  Receive Date: 20110606
  Receipt Date: 20110523
  Transmission Date: 20111010
  Serious: Yes (Life-Threatening, Hospitalization)
  Sender: FDA-Public Use
  Company Number: IN-PFIZER INC-2008058289

PATIENT
  Age: 45 Year
  Sex: Female

DRUGS (3)
  1. SERTRALINE HYDROCHLORIDE [Suspect]
     Dosage: 25 MG/DAY
     Route: 048
  2. ERYTHROPOIETIN [Concomitant]
  3. IRON [Concomitant]

REACTIONS (8)
  - AGITATION [None]
  - BLOOD PRESSURE FLUCTUATION [None]
  - ATRIAL FIBRILLATION [None]
  - MYOCLONUS [None]
  - LOSS OF CONSCIOUSNESS [None]
  - TREMOR [None]
  - HYPOTENSION [None]
  - SEROTONIN SYNDROME [None]
